FAERS Safety Report 9735839 (Version 1)
Quarter: 2013Q4

REPORT INFORMATION
  Report Type: Spontaneous
  Country: US (occurrence: US)
  Receive Date: 20131206
  Receipt Date: 20131206
  Transmission Date: 20140711
  Serious: No
  Sender: FDA-Public Use
  Company Number: US-GILEAD-2009-0024133

PATIENT
  Sex: Female
  Weight: 96.61 kg

DRUGS (11)
  1. LETAIRIS [Suspect]
     Indication: PULMONARY ARTERIAL HYPERTENSION
     Route: 048
     Dates: start: 20090526
  2. REVATIO [Concomitant]
  3. BENICAR HCT [Concomitant]
  4. FOLIC ACID [Concomitant]
  5. KLONOPIN [Concomitant]
  6. METHOTREXATE [Concomitant]
  7. ELAVIL [Concomitant]
  8. DYAZIDE [Concomitant]
  9. CARDIZEM CD [Concomitant]
  10. NABUMETONE [Concomitant]
  11. FLUOXETINE [Concomitant]

REACTIONS (1)
  - Dyspnoea [Unknown]
